FAERS Safety Report 5340737-3 (Version None)
Quarter: 2007Q2

REPORT INFORMATION
  Report Type: 
  Country: None (occurrence: None)
  Receive Date: 20070405
  Receipt Date: 20070103
  Transmission Date: 20071010
  Serious: No
  Sender: FDA-Public Use
  Company Number: US200701000840

PATIENT
  Sex: Female

DRUGS (3)
  1. CYMBALTA [Suspect]
     Dosage: 60 MG
     Dates: start: 20061201
  2. GEODON [Concomitant]
  3. AMBIEN [Concomitant]

REACTIONS (4)
  - DISCOMFORT [None]
  - EYE IRRITATION [None]
  - MYDRIASIS [None]
  - SLEEP DISORDER [None]
